FAERS Safety Report 5423629-0 (Version None)
Quarter: 2007Q3

REPORT INFORMATION
  Report Type: 
  Country: None (occurrence: None)
  Receive Date: 20070727
  Receipt Date: 20070523
  Transmission Date: 20080115
  Serious: Yes (Other)
  Sender: FDA-Public Use
  Company Number: USEN-73GRNW

PATIENT

DRUGS (1)
  1. DURAPREP [Suspect]
     Indication: PREOPERATIVE CARE
     Dosage: 26 ML, TOPICAL,SINGLE APPLICATION
     Route: 061

REACTIONS (2)
  - RASH [None]
  - SKIN REACTION [None]
